FAERS Safety Report 7483750-2 (Version None)
Quarter: 2011Q2

REPORT INFORMATION
  Report Type: 
  Country: None (occurrence: None)
  Receive Date: 20110517
  Receipt Date: 20110503
  Transmission Date: 20111010
  Serious: Yes (Hospitalization, Other)
  Sender: FDA-Public Use
  Company Number: US-ELI_LILLY_AND_COMPANY-US201105001235

PATIENT
  Age: 85 Year
  Sex: Female

DRUGS (18)
  1. FLECAINIDE ACETATE [Concomitant]
  2. HYDROCHLOROTHIAZIDE [Concomitant]
  3. CALCIUM [Concomitant]
  4. GABAPENTIN [Concomitant]
  5. MORPHINE SULFATE [Concomitant]
  6. FORTEO [Suspect]
     Indication: OSTEOPOROSIS
     Dosage: 20 UG, QD
     Dates: end: 20101101
  7. FORTEO [Suspect]
     Dosage: 20 UG, QD
     Dates: start: 20110401
  8. SYNTHROID [Concomitant]
  9. FOLIC ACID W/VITAMIN B12 [Concomitant]
  10. MULTI-VITAMIN [Concomitant]
  11. FLUOXETINE HYDROCHLORIDE [Concomitant]
  12. FOLTRIN [Concomitant]
  13. LORA TAB [Concomitant]
  14. DRISDOL [Concomitant]
  15. PRILOSEC [Concomitant]
  16. AMITRIPTYLINE HCL [Concomitant]
  17. MELATONIN [Concomitant]
  18. ATENOLOL [Concomitant]

REACTIONS (5)
  - FACIAL BONES FRACTURE [None]
  - NERVOUS SYSTEM DISORDER [None]
  - ELECTROLYTE IMBALANCE [None]
  - BALANCE DISORDER [None]
  - FALL [None]
